FAERS Safety Report 17300866 (Version 1)
Quarter: 2020Q1

REPORT INFORMATION
  Report Type: Spontaneous
  Country: CO (occurrence: CO)
  Receive Date: 20200122
  Receipt Date: 20200122
  Transmission Date: 20200409
  Serious: Yes (Death)
  Sender: FDA-Public Use
  Company Number: CO-PFIZER INC-2020029487

PATIENT
  Sex: Female

DRUGS (1)
  1. REAMPLA [Suspect]
     Active Substance: PALBOCICLIB
     Indication: BREAST CANCER METASTATIC
     Dosage: 1 DF, 1X/DAY
     Route: 048
     Dates: start: 20190223, end: 201912

REACTIONS (2)
  - Death [Fatal]
  - Traumatic lung injury [Unknown]

NARRATIVE: CASE EVENT DATE: 20200102
